FAERS Safety Report 7067633-8 (Version None)
Quarter: 2010Q4

REPORT INFORMATION
  Report Type: 
  Country: None (occurrence: None)
  Receive Date: 20101020
  Receipt Date: 20101011
  Transmission Date: 20110411
  Serious: Yes (Other)
  Sender: FDA-Public Use
  Company Number: 2010100020

PATIENT
  Sex: Male

DRUGS (4)
  1. FELBATOL [Suspect]
     Indication: CONVULSION
     Dosage: 3600 MG (600 MG, 6 IN 1 D), ORAL; (1200 MG, DAILY)
     Route: 048
     Dates: start: 19950101, end: 20100901
  2. FELBATOL [Suspect]
     Indication: CONVULSION
     Dosage: 3600 MG (600 MG, 6 IN 1 D), ORAL; (1200 MG, DAILY)
     Route: 048
     Dates: start: 20100901
  3. TOPAMAX [Concomitant]
  4. NEXIUM [Concomitant]

REACTIONS (7)
  - COMMUNICATION DISORDER [None]
  - CONVULSION [None]
  - EXPOSURE TO TOXIC AGENT [None]
  - INCORRECT DOSE ADMINISTERED [None]
  - MEMORY IMPAIRMENT [None]
  - MOOD SWINGS [None]
  - PARANOIA [None]
